FAERS Safety Report 7551796-1 (Version None)
Quarter: 2011Q2

REPORT INFORMATION
  Report Type: 
  Country: None (occurrence: None)
  Receive Date: 20110616
  Receipt Date: 20110608
  Transmission Date: 20111010
  Serious: Yes (Hospitalization)
  Sender: FDA-Public Use
  Company Number: B0726583A

PATIENT
  Age: 31 Year
  Sex: Female

DRUGS (1)
  1. ZYBAN [Suspect]
     Route: 065
     Dates: start: 20110530, end: 20110604

REACTIONS (3)
  - EPILEPSY [None]
  - JOINT DISLOCATION [None]
  - TONGUE BITING [None]
